FAERS Safety Report 10364178 (Version 1)
Quarter: 2014Q3

REPORT INFORMATION
  Report Type: Spontaneous
  Country: CH (occurrence: CH)
  Receive Date: 20140806
  Receipt Date: 20140806
  Transmission Date: 20150326
  Serious: Yes (Other)
  Sender: FDA-Public Use
  Company Number: CH-ROCHE-1442245

PATIENT
  Age: 43 Year
  Sex: Female

DRUGS (4)
  1. RITUXIMAB [Suspect]
     Active Substance: RITUXIMAB
     Indication: HAIRY CELL LEUKAEMIA
     Route: 065
  2. RITUXIMAB [Suspect]
     Active Substance: RITUXIMAB
     Route: 065
     Dates: start: 201302
  3. INTERFERON ALFA-2A [Suspect]
     Active Substance: INTERFERON ALFA-2A
     Indication: HAIRY CELL LEUKAEMIA
     Route: 065
     Dates: start: 201112
  4. CLADRIBINE. [Concomitant]
     Active Substance: CLADRIBINE
     Route: 058

REACTIONS (2)
  - Chronic cutaneous lupus erythematosus [Recovering/Resolving]
  - Infusion related reaction [Unknown]
